FAERS Safety Report 21451990 (Version 2)
Quarter: 2022Q4

REPORT INFORMATION
  Report Type: Spontaneous
  Country: US (occurrence: US)
  Receive Date: 20221013
  Receipt Date: 20221110
  Transmission Date: 20230112
  Serious: No
  Sender: FDA-Public Use
  Company Number: US-BRISTOL-MYERS SQUIBB COMPANY-2022-119731

PATIENT
  Age: 91 Year
  Sex: Female

DRUGS (2)
  1. REVLIMID [Suspect]
     Active Substance: LENALIDOMIDE
     Indication: Plasma cell myeloma
     Dosage: ONGOING
     Route: 048
     Dates: start: 202207
  2. REVLIMID [Suspect]
     Active Substance: LENALIDOMIDE
     Route: 048
     Dates: start: 20221012, end: 20221103

REACTIONS (2)
  - Nausea [Not Recovered/Not Resolved]
  - Weight decreased [Unknown]
